FAERS Safety Report 4969725-3 (Version None)
Quarter: 2006Q2

REPORT INFORMATION
  Report Type: 
  Country: None (occurrence: None)
  Receive Date: 20060411
  Receipt Date: 20060407
  Transmission Date: 20061013
  Serious: Yes (Death, Life-Threatening, Hospitalization)
  Sender: FDA-Public Use
  Company Number: FR-SANOFI-SYNTHELABO-F01200600984

PATIENT
  Sex: Male
  Weight: 77.2 kg

DRUGS (4)
  1. FLUOROURACIL [Suspect]
     Indication: OESOPHAGEAL CARCINOMA
     Dosage: 1000 MG/M2 CONTINUOUS INFUSION FROM DAY 1 TO DAY 4 EACH CYCLE
     Route: 042
     Dates: start: 20050921, end: 20050924
  2. CISPLATIN [Suspect]
     Route: 042
     Dates: start: 20050921, end: 20050921
  3. RADIOTHERAPY [Concomitant]
     Indication: OESOPHAGEAL CARCINOMA
     Dosage: TOTAL DOSE OF FRACTION ADMINISTERED BEFORE SAE: 50 GY
     Route: 050
     Dates: start: 20050627, end: 20050805
  4. DURAGESIC-100 [Concomitant]
     Dosage: 25 MG/HOUR

REACTIONS (11)
  - ANAEMIA [None]
  - DYSPHAGIA [None]
  - GASTROINTESTINAL HAEMORRHAGE [None]
  - GENERAL PHYSICAL HEALTH DETERIORATION [None]
  - HYPOTENSION [None]
  - MUCOSAL INFLAMMATION [None]
  - ORAL INTAKE REDUCED [None]
  - PANCYTOPENIA [None]
  - RENAL FAILURE [None]
  - SPEECH DISORDER [None]
  - THROMBOCYTOPENIA [None]
